FAERS Safety Report 15468375 (Version 2)
Quarter: 2018Q4

REPORT INFORMATION
  Report Type: Report from Study
  Country: JP (occurrence: JP)
  Receive Date: 20181005
  Receipt Date: 20181105
  Transmission Date: 20190204
  Serious: Yes (Hospitalization, Other)
  Sender: FDA-Public Use
  Company Number: PHJP2017JP003179

PATIENT
  Age: 64 Year
  Sex: Male

DRUGS (3)
  1. DEXAMETHASONE ^BELMAC^ [Concomitant]
     Indication: PLASMA CELL MYELOMA
     Dosage: UNK
     Route: 065
     Dates: start: 20160829, end: 20160902
  2. VELCADE [Concomitant]
     Active Substance: BORTEZOMIB
     Indication: PLASMA CELL MYELOMA
     Dosage: 1.3 MG/M2, QW
     Route: 042
     Dates: start: 20160829, end: 20160902
  3. FARYDAK [Suspect]
     Active Substance: PANOBINOSTAT
     Indication: PLASMA CELL MYELOMA
     Dosage: 20 MG, QD (3 DOSES PER CYCLE)
     Route: 048
     Dates: start: 20160829, end: 20160902

REACTIONS (6)
  - Haemoglobin decreased [Unknown]
  - Cell death [Unknown]
  - Blood uric acid increased [Unknown]
  - Renal impairment [Recovering/Resolving]
  - Concomitant disease aggravated [Recovering/Resolving]
  - Tumour lysis syndrome [Unknown]

NARRATIVE: CASE EVENT DATE: 20160902
